FAERS Safety Report 11589349 (Version 3)
Quarter: 2015Q4

REPORT INFORMATION
  Report Type: Spontaneous
  Country: CZ (occurrence: CZ)
  Receive Date: 20151002
  Receipt Date: 20151007
  Transmission Date: 20160304
  Serious: Yes (Death, Hospitalization)
  Sender: FDA-Public Use
  Company Number: CZ-TEVA-597729ISR

PATIENT
  Age: 14 Year
  Sex: Female

DRUGS (2)
  1. PROPAFENONE. [Interacting]
     Active Substance: PROPAFENONE
     Dosage: PROBABLY 1500-3000 MG
  2. METOPROLOL [Suspect]
     Active Substance: METOPROLOL
     Dosage: PROBABLY 1000 MG

REACTIONS (10)
  - Acute kidney injury [Unknown]
  - Electrocardiogram QRS complex prolonged [Unknown]
  - Loss of consciousness [Unknown]
  - Suicide attempt [Unknown]
  - Toxicity to various agents [Fatal]
  - Overdose [Fatal]
  - Drug interaction [Fatal]
  - Cardiac arrest [Not Recovered/Not Resolved]
  - Brain oedema [Unknown]
  - Seizure [Unknown]
